FAERS Safety Report 25010876 (Version 1)
Quarter: 2025Q1

REPORT INFORMATION
  Report Type: Report from Study
  Country: US (occurrence: US)
  Receive Date: 20250225
  Receipt Date: 20250225
  Transmission Date: 20250409
  Serious: Yes (Other)
  Sender: ABBVIE
  Company Number: US-ABBVIE-5369674

PATIENT
  Age: 75 Year
  Sex: Female

DRUGS (3)
  1. HUMIRA [Suspect]
     Active Substance: ADALIMUMAB
     Indication: Rheumatoid arthritis
     Route: 058
     Dates: start: 20100110
  2. HUMIRA [Suspect]
     Active Substance: ADALIMUMAB
     Route: 058
     Dates: start: 20031223
  3. HUMIRA [Suspect]
     Active Substance: ADALIMUMAB
     Route: 058
     Dates: start: 20230815, end: 20230901

REACTIONS (13)
  - Hepatic cirrhosis [Unknown]
  - Oedema peripheral [Not Recovered/Not Resolved]
  - Hepatic cancer stage I [Not Recovered/Not Resolved]
  - Fall [Not Recovered/Not Resolved]
  - Knee arthroplasty [Recovering/Resolving]
  - Arthritis infective [Not Recovered/Not Resolved]
  - Patella fracture [Unknown]
  - Viral infection [Not Recovered/Not Resolved]
  - Joint stiffness [Not Recovered/Not Resolved]
  - Hepatic steatosis [Unknown]
  - Secretion discharge [Unknown]
  - Asthma [Unknown]
  - Multiple allergies [Recovering/Resolving]

NARRATIVE: CASE EVENT DATE: 20150101
